FAERS Safety Report 4649355-3 (Version None)
Quarter: 2005Q2

REPORT INFORMATION
  Report Type: 
  Country: None (occurrence: None)
  Receive Date: 20050429
  Receipt Date: 20050420
  Transmission Date: 20051028
  Serious: Yes (Hospitalization, Other)
  Sender: FDA-Public Use
  Company Number: AU-ABBOTT-05P-008-0298031-00

PATIENT
  Age: 66 Year
  Sex: Male

DRUGS (9)
  1. RITONAVIR [Suspect]
     Indication: HIV INFECTION
     Route: 048
  2. RITONAVIR [Suspect]
     Route: 048
  3. FLUTICASONE PROPIONATE [Interacting]
     Indication: ASTHMA
     Route: 055
  4. SALMETEROL [Concomitant]
     Indication: ASTHMA
     Route: 055
  5. PREDNISOLONE [Concomitant]
     Indication: DRUG USE FOR UNKNOWN INDICATION
     Route: 048
  6. PREDNISOLONE [Concomitant]
     Dosage: NOT REPORTED
     Route: 048
  7. PREDNISOLONE [Concomitant]
     Dosage: NOT REPORTED
     Route: 048
  8. PREDNISOLONE [Concomitant]
     Dosage: NOT REPORTED
     Route: 048
  9. PREDNISOLONE [Concomitant]
     Dosage: NOT REPORTED
     Route: 048

REACTIONS (13)
  - AMNESIA [None]
  - CONTUSION [None]
  - DEMYELINATING POLYNEUROPATHY [None]
  - DISTURBANCE IN ATTENTION [None]
  - DRUG INTERACTION [None]
  - FATIGUE [None]
  - GLUCOCORTICOIDS INCREASED [None]
  - LETHARGY [None]
  - LIPOMATOSIS [None]
  - MUSCLE ATROPHY [None]
  - OESOPHAGEAL CANDIDIASIS [None]
  - PANCREATITIS ACUTE [None]
  - SOMNOLENCE [None]
